FAERS Safety Report 6015360-8 (Version None)
Quarter: 2008Q4

REPORT INFORMATION
  Report Type: 
  Country: None (occurrence: None)
  Receive Date: 20081222
  Receipt Date: 20081215
  Transmission Date: 20090506
  Serious: Yes (Hospitalization)
  Sender: FDA-Public Use
  Company Number: DE-BIOGENIDEC-2008BI019261

PATIENT
  Age: 48 Year
  Sex: Male
  Weight: 74 kg

DRUGS (1)
  1. AVONEX [Suspect]
     Indication: RELAPSING-REMITTING MULTIPLE SCLEROSIS
     Route: 030
     Dates: start: 20030102, end: 20080804

REACTIONS (2)
  - METASTATIC MALIGNANT MELANOMA [None]
  - TRANSITIONAL CELL CARCINOMA [None]
